FAERS Safety Report 9038279 (Version 1)
Quarter: 2013Q1

REPORT INFORMATION
  Report Type: Spontaneous
  Country: US (occurrence: US)
  Receive Date: 20130129
  Receipt Date: 20130129
  Transmission Date: 20140127
  Serious: Yes (Other)
  Sender: FDA-Public Use
  Company Number: US-ROCHE-1046943

PATIENT
  Age: 51 None
  Sex: Male
  Weight: 90.8 kg

DRUGS (4)
  1. ACCUTANE [Suspect]
     Indication: ACNE
     Route: 065
     Dates: start: 1987, end: 2005
  2. BABY ASPIRIN [Concomitant]
  3. CELEBREX [Concomitant]
  4. METOPROLOL [Concomitant]

REACTIONS (7)
  - Colitis ulcerative [Unknown]
  - Diverticulitis [Unknown]
  - Blood cholesterol increased [Unknown]
  - Headache [Unknown]
  - Fatigue [Unknown]
  - Joint injury [Unknown]
  - Pain in extremity [Unknown]
